FAERS Safety Report 13316294 (Version 2)
Quarter: 2017Q1

REPORT INFORMATION
  Report Type: Spontaneous
  Country: JP (occurrence: JP)
  Receive Date: 20170310
  Receipt Date: 20170323
  Transmission Date: 20170428
  Serious: Yes (Hospitalization)
  Sender: FDA-Public Use
  Company Number: JP-ORION CORPORATION ORION PHARMA-ENTC2017-0105

PATIENT
  Age: 79 Year
  Sex: Female

DRUGS (1)
  1. STALEVO [Suspect]
     Active Substance: CARBIDOPA\ENTACAPONE\LEVODOPA
     Indication: PARKINSON^S DISEASE
     Dosage: STRENGTH: 100/10/100 MG
     Route: 048

REACTIONS (6)
  - Urinary tract infection [Unknown]
  - Dysphagia [Unknown]
  - Haematuria [Unknown]
  - Activities of daily living impaired [Unknown]
  - Pyrexia [Unknown]
  - Decreased appetite [Unknown]
